FAERS Safety Report 9789871 (Version 3)
Quarter: 2019Q2

REPORT INFORMATION
  Report Type: Report from Study
  Country: CA (occurrence: CA)
  Receive Date: 20131231
  Receipt Date: 20190501
  Transmission Date: 20190711
  Serious: Yes (Other)
  Sender: FDA-Public Use
  Company Number: CA-PFIZER INC-2013370227

PATIENT
  Age: 32 Year
  Sex: Male
  Weight: 53.7 kg

DRUGS (17)
  1. ENABLEX [Suspect]
     Active Substance: DARIFENACIN HYDROBROMIDE
     Indication: CYSTITIS ULCERATIVE
     Dosage: 7.5 MG, 1X/DAY
     Dates: start: 20121101, end: 20130201
  2. MARAVIROC [Suspect]
     Active Substance: MARAVIROC
     Indication: HIV INFECTION
     Dosage: 1 DF, 2X/DAY
     Route: 048
     Dates: start: 20120315, end: 20130508
  3. RALTEGRAVIR. [Suspect]
     Active Substance: RALTEGRAVIR
     Indication: HIV INFECTION
     Dosage: 1 DF, DAILY
     Route: 048
     Dates: start: 20120315, end: 20130508
  4. ELMIRON [Suspect]
     Active Substance: PENTOSAN POLYSULFATE SODIUM
     Indication: CYSTITIS ULCERATIVE
     Dosage: 100 MG, 2X/DAY
     Route: 048
     Dates: start: 20120711, end: 20130228
  5. TOVIAZ [Suspect]
     Active Substance: FESOTERODINE FUMARATE
     Indication: CYSTITIS ULCERATIVE
     Dosage: 4-8MG DAILY
     Route: 048
     Dates: start: 20121101, end: 20130115
  6. ATIVAN [Concomitant]
     Active Substance: LORAZEPAM
     Dosage: 2 MG, 2X/DAY
     Dates: start: 20120225, end: 20130308
  7. DETROL LA [Suspect]
     Active Substance: TOLTERODINE TARTRATE
     Indication: CYSTITIS ULCERATIVE
     Dosage: 4 MG, 1X/DAY
     Route: 048
     Dates: start: 20120516, end: 20120605
  8. WELLBUTRIN [Concomitant]
     Active Substance: BUPROPION HYDROCHLORIDE
     Dosage: 150 MG, 1X/DAY
     Dates: start: 20120225, end: 20130313
  9. TRUVADA [Suspect]
     Active Substance: EMTRICITABINE\TENOFOVIR DISOPROXIL FUMARATE
     Indication: HIV INFECTION
     Dosage: 1 DF, 1X/DAY (200/300MG)
     Route: 048
     Dates: start: 20120315, end: 20130508
  10. CYMBALTA [Suspect]
     Active Substance: DULOXETINE HYDROCHLORIDE
     Indication: CYSTITIS ULCERATIVE
     Dosage: 600 MG, 1X/DAY
     Dates: start: 20121101, end: 20130325
  11. FLOXIN ^JANSSEN-ORTHO^ [Concomitant]
     Dosage: 400 MG, 2X/DAY
     Dates: start: 20120718, end: 20120808
  12. DETROL LA [Suspect]
     Active Substance: TOLTERODINE TARTRATE
     Dosage: 4 MG, 1X/DAY
     Route: 048
     Dates: start: 20121101, end: 20130325
  13. ELMIRON [Suspect]
     Active Substance: PENTOSAN POLYSULFATE SODIUM
     Dosage: 100 MG, 2X/DAY
     Route: 048
     Dates: start: 20130305, end: 20130325
  14. GABAPENTIN. [Concomitant]
     Active Substance: GABAPENTIN
     Dosage: 100 MG, AS NEEDED
     Dates: start: 20120830, end: 20121210
  15. ELMIRON [Suspect]
     Active Substance: PENTOSAN POLYSULFATE SODIUM
     Dosage: 100 MG, 2X/DAY
     Route: 048
     Dates: start: 20130424, end: 20130527
  16. ENABLEX [Suspect]
     Active Substance: DARIFENACIN HYDROBROMIDE
     Indication: PROSTATITIS
     Dosage: 7.5 MG, 1X/DAY
     Dates: start: 20120516, end: 20120605
  17. OXYCOCET [Concomitant]
     Active Substance: ACETAMINOPHEN\OXYCODONE HYDROCHLORIDE
     Indication: PAIN MANAGEMENT
     Dosage: 5 MG, AS NEEDED
     Dates: start: 20120327

REACTIONS (2)
  - Neutropenia [Recovered/Resolved]
  - Neutropenia [Recovered/Resolved]

NARRATIVE: CASE EVENT DATE: 20121218
